FAERS Safety Report 9805294 (Version 1)
Quarter: 2014Q1

REPORT INFORMATION
  Report Type: Spontaneous
  Country: ES (occurrence: ES)
  Receive Date: 20140109
  Receipt Date: 20140109
  Transmission Date: 20141002
  Serious: Yes (Hospitalization, Other)
  Sender: FDA-Public Use
  Company Number: ES-009507513-1401ESP000455

PATIENT
  Age: 66 Year
  Sex: Female

DRUGS (3)
  1. PEGINTRON [Suspect]
     Indication: CHRONIC HEPATITIS C
     Dosage: 100 MCG SEMANAL
     Route: 058
     Dates: start: 20130916
  2. RIBAVIRIN [Suspect]
     Indication: CHRONIC HEPATITIS C
     Dosage: 400 MG DOS VECES AL DIA
     Route: 048
     Dates: start: 20130916
  3. TELAPREVIR [Suspect]
     Indication: CHRONIC HEPATITIS C
     Dosage: 750 MG 2 VECES AL DIA
     Route: 048
     Dates: start: 20130916, end: 20131209

REACTIONS (4)
  - Respiratory tract infection [Recovering/Resolving]
  - Leukopenia [Recovering/Resolving]
  - Renal failure acute [Recovered/Resolved]
  - Anaemia [Not Recovered/Not Resolved]
